FAERS Safety Report 19108990 (Version 8)
Quarter: 2025Q1

REPORT INFORMATION
  Report Type: Spontaneous
  Country: US (occurrence: US)
  Receive Date: 20210408
  Receipt Date: 20250120
  Transmission Date: 20250409
  Serious: No
  Sender: SANOFI AVENTIS
  Company Number: US-SANOFI-00533423

PATIENT
  Age: 46 Year
  Sex: Female

DRUGS (8)
  1. TOUJEO [Suspect]
     Active Substance: INSULIN GLARGINE
     Indication: Type 1 diabetes mellitus
     Dosage: 14 IU, QD
     Route: 065
  2. TOUJEO [Suspect]
     Active Substance: INSULIN GLARGINE
     Dosage: 12-14 UNITS, QD
     Route: 065
  3. TOUJEO [Suspect]
     Active Substance: INSULIN GLARGINE
     Dosage: 12-13 IU, QD
     Route: 065
  4. TOUJEO [Suspect]
     Active Substance: INSULIN GLARGINE
     Route: 065
  5. TOUJEO [Suspect]
     Active Substance: INSULIN GLARGINE
     Dosage: 2 TO 14 U Q HS
  6. INSULIN NOS [Concomitant]
     Active Substance: INSULIN NOS
  7. TRESIBA [Concomitant]
     Active Substance: INSULIN DEGLUDEC
  8. HUMALOG [Concomitant]
     Active Substance: INSULIN LISPRO

REACTIONS (7)
  - Injection site haemorrhage [Unknown]
  - Blood glucose increased [Unknown]
  - Therapeutic response decreased [Unknown]
  - Product quality issue [Unknown]
  - Liquid product physical issue [Unknown]
  - Off label use [Unknown]
  - Drug ineffective [Unknown]
